FAERS Safety Report 24454079 (Version 2)
Quarter: 2024Q4

REPORT INFORMATION
  Report Type: Report from Study
  Country: US (occurrence: US)
  Receive Date: 20241017
  Receipt Date: 20241018
  Transmission Date: 20250115
  Serious: No
  Sender: ROCHE
  Company Number: US-ROCHE-3406227

PATIENT
  Age: 39 Year
  Sex: Female

DRUGS (2)
  1. RITUXAN [Suspect]
     Active Substance: RITUXIMAB
     Indication: Systemic lupus erythematosus
     Dosage: DATE OF SERVICE: 29/AUG/2023, 05/MAR/2024, 19/MAR/2024?1ST AND 2ND DOSE (2 WEEKS APART) EVERY 6 MONT
     Route: 041
  2. RITUXAN [Suspect]
     Active Substance: RITUXIMAB
     Indication: Proteinuria

REACTIONS (2)
  - Off label use [Unknown]
  - No adverse event [Unknown]
